FAERS Safety Report 6626382-8 (Version None)
Quarter: 2010Q1

REPORT INFORMATION
  Report Type: 
  Country: None (occurrence: None)
  Receive Date: 20100310
  Receipt Date: 20091104
  Transmission Date: 20100710
  Serious: No
  Sender: FDA-Public Use
  Company Number: US-ABBOTT-09P-163-0607648-00

PATIENT

DRUGS (1)
  1. LUPRON DEPOT [Suspect]
     Indication: DRUG USE FOR UNKNOWN INDICATION
     Dosage: X 3 CONSECUTIVE DAYS DID NOT INDICATE PED/GYNE OR PLAIN OR DEPOT
     Route: 050

REACTIONS (1)
  - DRUG PRESCRIBING ERROR [None]
